FAERS Safety Report 8322643-5 (Version None)
Quarter: 2012Q2

REPORT INFORMATION
  Report Type: 
  Country: None (occurrence: None)
  Receive Date: 20120430
  Receipt Date: 20120420
  Transmission Date: 20120825
  Serious: Yes (Other)
  Sender: FDA-Public Use
  Company Number: GR-MERCK-1204USA03270

PATIENT
  Sex: Female

DRUGS (4)
  1. ISOPTO CARPINE [Concomitant]
     Route: 065
  2. TRUSOPT [Suspect]
     Route: 065
  3. ALPHAGAN [Concomitant]
     Route: 065
  4. TRAVATAN [Concomitant]
     Route: 065

REACTIONS (2)
  - BLINDNESS [None]
  - CATARACT [None]
